FAERS Safety Report 6061345-5 (Version None)
Quarter: 2009Q1

REPORT INFORMATION
  Report Type: 
  Country: None (occurrence: None)
  Receive Date: 20090202
  Receipt Date: 20090123
  Transmission Date: 20090719
  Serious: Yes (Hospitalization)
  Sender: FDA-Public Use
  Company Number: DE-ABBOTT-08P-062-0494056-00

PATIENT
  Sex: Female

DRUGS (3)
  1. HUMIRA [Suspect]
     Indication: CROHN'S DISEASE
     Route: 058
     Dates: start: 20071201
  2. EYE DROPS [Concomitant]
     Indication: GLAUCOMA
  3. CORTISON [Concomitant]
     Indication: CROHN'S DISEASE

REACTIONS (1)
  - ANGLE CLOSURE GLAUCOMA [None]
